FAERS Safety Report 4421463-1 (Version None)
Quarter: 2004Q3

REPORT INFORMATION
  Report Type: 
  Country: None (occurrence: None)
  Receive Date: 20040712
  Receipt Date: 20040331
  Transmission Date: 20050211
  Serious: No
  Sender: FDA-Public Use
  Company Number: 2004-04-0066

PATIENT
  Age: 62 Year
  Sex: Female

DRUGS (1)
  1. CLARINEX [Suspect]
     Indication: HYPERSENSITIVITY
     Dosage: 1 QD ORAL
     Route: 048
     Dates: start: 20040323, end: 20040325

REACTIONS (3)
  - DIZZINESS [None]
  - TACHYCARDIA [None]
  - TINNITUS [None]
